FAERS Safety Report 4600148-2 (Version None)
Quarter: 2005Q1

REPORT INFORMATION
  Report Type: 
  Country: None (occurrence: None)
  Receive Date: 20050307
  Receipt Date: 20050211
  Transmission Date: 20050727
  Serious: Yes (Hospitalization)
  Sender: FDA-Public Use
  Company Number: 20050200030

PATIENT
  Age: 52 Year
  Sex: Male

DRUGS (7)
  1. PHENERGAN HCL [Suspect]
     Indication: NAUSEA
     Dates: start: 20040826, end: 20040826
  2. MORPHINE SULFATE [Suspect]
     Indication: PAIN
     Dates: start: 20040826, end: 20040826
  3. ULTRAM (TRAMODOL HYDROCHLORIDE) [Concomitant]
  4. PREVACID [Concomitant]
  5. LEVSIN (HYOSCYAMINE SULFATE) [Concomitant]
  6. CARAFATE [Concomitant]
  7. PHENERGAN [Concomitant]

REACTIONS (12)
  - ABDOMINAL DISCOMFORT [None]
  - CONDITION AGGRAVATED [None]
  - DRUG HYPERSENSITIVITY [None]
  - MEDICATION ERROR [None]
  - MULTIPLE SCLEROSIS [None]
  - MUSCLE SPASMS [None]
  - PAIN [None]
  - PARAESTHESIA [None]
  - PARALYSIS [None]
  - TACHYCARDIA [None]
  - TARDIVE DYSKINESIA [None]
  - TREMOR [None]
